FAERS Safety Report 7021353-4 (Version None)
Quarter: 2010Q3

REPORT INFORMATION
  Report Type: 
  Country: None (occurrence: None)
  Receive Date: 20100929
  Receipt Date: 20100921
  Transmission Date: 20110219
  Serious: No
  Sender: FDA-Public Use
  Company Number: US-PFIZER INC-2010121268

PATIENT
  Sex: Male
  Weight: 74.83 kg

DRUGS (2)
  1. ALPRAZOLAM [Suspect]
     Indication: PANIC ATTACK
     Dosage: 2 MG, 3X/DAY
     Route: 048
  2. ALPRAZOLAM [Suspect]
     Indication: ANXIETY

REACTIONS (1)
  - DRUG INEFFECTIVE [None]
